APPROVED DRUG PRODUCT: GENTAMICIN SULFATE
Active Ingredient: GENTAMICIN SULFATE
Strength: EQ 0.1% BASE
Dosage Form/Route: OINTMENT;TOPICAL
Application: A209233 | Product #001
Applicant: ENCUBE ETHICALS PRIVATE LTD
Approved: Dec 31, 2018 | RLD: No | RS: No | Type: DISCN